FAERS Safety Report 8482298-6 (Version None)
Quarter: 2012Q3

REPORT INFORMATION
  Report Type: 
  Country: None (occurrence: None)
  Receive Date: 20120702
  Receipt Date: 20120626
  Transmission Date: 20120928
  Serious: Yes (Other)
  Sender: FDA-Public Use
  Company Number: BR-ROCHE-1071235

PATIENT
  Sex: Female
  Weight: 53 kg

DRUGS (10)
  1. ACTEMRA [Suspect]
     Dates: start: 20111201
  2. ACTEMRA [Suspect]
     Dates: start: 20120501
  3. ACTEMRA [Suspect]
     Indication: RHEUMATOID ARTHRITIS
     Route: 042
     Dates: start: 20110901
  4. ACTEMRA [Suspect]
     Dates: start: 20120201
  5. PREDNISOLONE [Concomitant]
  6. PARACETAMOL [Concomitant]
  7. ACTEMRA [Suspect]
     Dates: start: 20120101
  8. PREDNISOLONE [Concomitant]
  9. ACTEMRA [Suspect]
     Dates: start: 20120301
  10. POLARAMINE [Concomitant]

REACTIONS (6)
  - SWELLING [None]
  - TENDONITIS [None]
  - HYPOTENSION [None]
  - WHITE BLOOD CELL COUNT DECREASED [None]
  - ARTHRALGIA [None]
  - WEIGHT INCREASED [None]
